FAERS Safety Report 25405195 (Version 1)
Quarter: 2025Q2

REPORT INFORMATION
  Report Type: Spontaneous
  Country: DE (occurrence: DE)
  Receive Date: 20250606
  Receipt Date: 20250606
  Transmission Date: 20250716
  Serious: Yes (Other)
  Sender: AUROBINDO
  Company Number: DE-AMK-288009

PATIENT
  Sex: Male

DRUGS (2)
  1. ZOLPIDEM [Suspect]
     Active Substance: ZOLPIDEM TARTRATE
     Indication: Product used for unknown indication
     Route: 065
     Dates: start: 20250515
  2. QUETIAPINE [Suspect]
     Active Substance: QUETIAPINE
     Indication: Product used for unknown indication
     Route: 065
     Dates: start: 20250515

REACTIONS (4)
  - Drug dependence [Unknown]
  - Drug abuse [Unknown]
  - Feeling jittery [Unknown]
  - Pallor [Unknown]

NARRATIVE: CASE EVENT DATE: 20250515
